FAERS Safety Report 5400043-5 (Version None)
Quarter: 2007Q3

REPORT INFORMATION
  Report Type: 
  Country: None (occurrence: None)
  Receive Date: 20070725
  Receipt Date: 20070713
  Transmission Date: 20080115
  Serious: Yes (Hospitalization)
  Sender: FDA-Public Use
  Company Number: TKT01200700351

PATIENT
  Age: 23 Year
  Sex: Male

DRUGS (2)
  1. IDURSULFASE (IDURSULFASE) (0.5 MILLIGRAM(S) /KILOGRAM, CONCENTRATE FOR [Suspect]
     Indication: MUCOPOLYSACCHARIDOSIS II
     Dosage: (-.5 MG/KG, 1 IN 1 WK), INTRAVENOUS DRIP
     Route: 041
     Dates: start: 20041228
  2. ESOMEPRAZOL (ESOMEPRAZOLE) [Concomitant]

REACTIONS (2)
  - INGUINAL HERNIA [None]
  - PNEUMONIA [None]
